FAERS Safety Report 5025355-9 (Version None)
Quarter: 2006Q2

REPORT INFORMATION
  Report Type: 
  Country: None (occurrence: None)
  Receive Date: 20060426
  Receipt Date: 20060106
  Transmission Date: 20061013
  Serious: Yes (Other)
  Sender: FDA-Public Use
  Company Number: 2006005859

PATIENT
  Age: 71 Year
  Sex: Male

DRUGS (17)
  1. LYRICA [Suspect]
     Indication: ILL-DEFINED DISORDER
     Dosage: 75 MG (75 MG,3 IN 1 D)
  2. GABAPENTIN [Concomitant]
  3. RANITIDINE HYDROCHLORIDE [Concomitant]
  4. POTASSIUM CHLORIDE [Concomitant]
  5. FUROSEMIDE [Concomitant]
  6. LISINOPRIL [Concomitant]
  7. LORATADINE [Concomitant]
  8. HYDROXYZINE [Concomitant]
  9. TRAMADOL HCL [Concomitant]
  10. ACETAMINOPHEN [Concomitant]
  11. VITAMINS (VITAMINS) [Concomitant]
  12. SAW PALMETTO (SAW PALMETTO) [Concomitant]
  13. VITAMIN B12 [Concomitant]
  14. VITAMIN E [Concomitant]
  15. VITAMIN C (VITAMIN C) [Concomitant]
  16. CALCIUM (CALCIUM) [Concomitant]
  17. VITAMIN D [Concomitant]

REACTIONS (4)
  - MUSCLE SPASMS [None]
  - ORTHOPNOEA [None]
  - POLYNEUROPATHY [None]
  - SLEEP APNOEA SYNDROME [None]
